FAERS Safety Report 10047189 (Version 2)
Quarter: 2014Q1

REPORT INFORMATION
  Report Type: Spontaneous
  Country: US (occurrence: US)
  Receive Date: 20140331
  Receipt Date: 20140331
  Transmission Date: 20141002
  Serious: No
  Sender: FDA-Public Use
  Company Number: US-MYLANLABS-2013S1017774

PATIENT
  Sex: Female

DRUGS (6)
  1. FENTANYL TRANSDERMAL SYSTEM [Suspect]
     Indication: PAIN
     Dosage: Q72H
     Route: 062
     Dates: start: 2011
  2. FENTANYL TRANSDERMAL SYSTEM [Suspect]
     Indication: PAIN
     Dosage: Q72H
     Route: 062
     Dates: start: 2011
  3. PAIN MEDICATIONS [Concomitant]
     Indication: PAIN
     Dosage: TAKEN FOR YEARS
  4. DICLOFENAC [Concomitant]
     Indication: ARTHRITIS
     Dosage: TAKEN FOR YEARS
  5. FOSAMAX [Concomitant]
     Indication: OSTEOPOROSIS
     Dosage: TAKEN FOR YEARS
  6. VITAMINS [Concomitant]
     Indication: VITAMIN SUPPLEMENTATION
     Dosage: TAKEN FOR YEARS

REACTIONS (2)
  - Hot flush [Not Recovered/Not Resolved]
  - Hyperhidrosis [Not Recovered/Not Resolved]
